FAERS Safety Report 12768412 (Version 1)
Quarter: 2016Q3

REPORT INFORMATION
  Report Type: Spontaneous
  Country: US (occurrence: US)
  Receive Date: 20160920
  Receipt Date: 20160920
  Transmission Date: 20161109
  Serious: Yes (Hospitalization)
  Sender: FDA-Public Use
  Company Number: None

PATIENT

DRUGS (10)
  1. LISINOPRIL/HCTZ [Concomitant]
     Active Substance: HYDROCHLOROTHIAZIDE\LISINOPRIL
  2. SULINDAC. [Concomitant]
     Active Substance: SULINDAC
  3. COLACE [Concomitant]
     Active Substance: DOCUSATE SODIUM
  4. METFORMIN [Concomitant]
     Active Substance: METFORMIN HYDROCHLORIDE
  5. GABAPENTIN. [Concomitant]
     Active Substance: GABAPENTIN
  6. PRILOSEC [Concomitant]
     Active Substance: OMEPRAZOLE MAGNESIUM
  7. VICTOZA [Suspect]
     Active Substance: LIRAGLUTIDE
     Indication: TYPE 2 DIABETES MELLITUS
     Route: 058
     Dates: start: 20150506, end: 20160820
  8. CLARITIN [Concomitant]
     Active Substance: LORATADINE
  9. NORCO [Concomitant]
     Active Substance: ACETAMINOPHEN\HYDROCODONE BITARTRATE
  10. BENADRYL [Concomitant]
     Active Substance: DIPHENHYDRAMINE HYDROCHLORIDE

REACTIONS (8)
  - Back pain [None]
  - Blood pressure decreased [None]
  - Blood potassium decreased [None]
  - Dyspnoea [None]
  - Dizziness [None]
  - Blood magnesium decreased [None]
  - Pancreatitis acute [None]
  - Asthenia [None]

NARRATIVE: CASE EVENT DATE: 20160820
